FAERS Safety Report 5314759-2 (Version None)
Quarter: 2007Q2

REPORT INFORMATION
  Report Type: 
  Country: None (occurrence: None)
  Receive Date: 20070502
  Receipt Date: 20070424
  Transmission Date: 20071010
  Serious: Yes (Hospitalization)
  Sender: FDA-Public Use
  Company Number: US-ABBOTT-07P-163-0365997-00

PATIENT
  Sex: Female
  Weight: 90.8 kg

DRUGS (5)
  1. HUMIRA [Suspect]
     Indication: RHEUMATOID ARTHRITIS
     Route: 058
     Dates: start: 20070405, end: 20070405
  2. OBETROL [Concomitant]
     Indication: DRUG USE FOR UNKNOWN INDICATION
  3. VENLAFAXIINE HCL [Concomitant]
     Indication: DRUG USE FOR UNKNOWN INDICATION
  4. DIFLENAC [Concomitant]
     Indication: DRUG USE FOR UNKNOWN INDICATION
  5. DIOVAN [Concomitant]
     Indication: DRUG USE FOR UNKNOWN INDICATION

REACTIONS (3)
  - ABASIA [None]
  - APHASIA [None]
  - PARAESTHESIA [None]
